FAERS Safety Report 6051879-1 (Version None)
Quarter: 2009Q1

REPORT INFORMATION
  Report Type: 
  Country: None (occurrence: None)
  Receive Date: 20090126
  Receipt Date: 20090120
  Transmission Date: 20090719
  Serious: Yes (Death)
  Sender: FDA-Public Use
  Company Number: NZ-GENENTECH-272340

PATIENT
  Sex: Male
  Weight: 80 kg

DRUGS (2)
  1. METALYSE [Suspect]
     Indication: MYOCARDIAL INFARCTION
     Dosage: 40 MG, UNK
     Route: 042
     Dates: start: 20071201
  2. METALYSE [Suspect]
     Indication: CARDIOGENIC SHOCK

REACTIONS (2)
  - CARDIAC ARREST [None]
  - VENTRICULAR FIBRILLATION [None]
